FAERS Safety Report 5648579-6 (Version None)
Quarter: 2008Q1

REPORT INFORMATION
  Report Type: 
  Country: None (occurrence: None)
  Receive Date: 20080303
  Receipt Date: 20080303
  Transmission Date: 20080703
  Serious: Yes (Other)
  Sender: FDA-Public Use
  Company Number: None

PATIENT
  Age: 66 Year
  Sex: Female
  Weight: 74.8435 kg

DRUGS (1)
  1. CHANTIX [Suspect]
     Indication: NICOTINE DEPENDENCE
     Dosage: 1 MG 2X DAILY
     Dates: start: 20080119, end: 20080228

REACTIONS (6)
  - ANGER [None]
  - DEPRESSION [None]
  - FEELING ABNORMAL [None]
  - FRUSTRATION [None]
  - MEMORY IMPAIRMENT [None]
  - MENTAL DISORDER [None]
